FAERS Safety Report 4388866-5 (Version None)
Quarter: 2004Q2

REPORT INFORMATION
  Report Type: 
  Country: None (occurrence: None)
  Receive Date: 20040624
  Receipt Date: 20040617
  Transmission Date: 20050107
  Serious: Yes (Hospitalization)
  Sender: FDA-Public Use
  Company Number: 104066ISR

PATIENT
  Age: 54 Year
  Sex: Female

DRUGS (3)
  1. GLATIRAMER ACETATE [Suspect]
     Indication: MULTIPLE SCLEROSIS
     Dosage: 20 MILLIGRAM
     Route: 058
     Dates: start: 20031201, end: 20040304
  2. GLATIRAMER ACETATE [Suspect]
     Indication: MULTIPLE SCLEROSIS
     Dosage: 20 MILLIGRAM
     Route: 058
     Dates: start: 20040101
  3. TITANOREINE [Concomitant]

REACTIONS (8)
  - DYSPNOEA [None]
  - ERYTHEMA [None]
  - FLUSHING [None]
  - HAEMOGLOBIN INCREASED [None]
  - LEUKOCYTOSIS [None]
  - LIPASE INCREASED [None]
  - MALAISE [None]
  - VASODILATATION [None]
